FAERS Safety Report 23278670 (Version 1)
Quarter: 2023Q4

REPORT INFORMATION
  Report Type: Spontaneous
  Country: US (occurrence: US)
  Receive Date: 20231208
  Receipt Date: 20231208
  Transmission Date: 20240110
  Serious: No
  Sender: FDA-Public Use
  Company Number: US-SUNOVION-2023SUN001288AA

PATIENT

DRUGS (5)
  1. LATUDA [Suspect]
     Active Substance: LURASIDONE HYDROCHLORIDE
     Indication: Depression
     Dosage: 20 MG, QD (HALF 40MG TABLET)
     Route: 048
  2. HYDROXYZINE [Concomitant]
     Active Substance: HYDROXYZINE HYDROCHLORIDE
     Indication: Depression
     Dosage: 10 MG, IN THE MORNING
     Route: 065
  3. CITALOPRAM [Concomitant]
     Active Substance: CITALOPRAM HYDROBROMIDE
     Indication: Depression
     Dosage: 40 MG
     Route: 065
  4. LEVOTHYROXINE [Concomitant]
     Active Substance: LEVOTHYROXINE
     Indication: Thyroid disorder
     Dosage: UNKNOWN
     Route: 065
  5. MEMANTINE [Concomitant]
     Active Substance: MEMANTINE
     Indication: Memory impairment
     Dosage: UNKNOWN
     Route: 065

REACTIONS (7)
  - Tachyphrenia [Not Recovered/Not Resolved]
  - Feeling abnormal [Not Recovered/Not Resolved]
  - Weight decreased [Not Recovered/Not Resolved]
  - Restlessness [Not Recovered/Not Resolved]
  - Off label use [Unknown]
  - Wrong technique in product usage process [Unknown]
  - Intentional dose omission [Unknown]
